FAERS Safety Report 5313645-1 (Version None)
Quarter: 2007Q2

REPORT INFORMATION
  Report Type: 
  Country: None (occurrence: None)
  Receive Date: 20070501
  Receipt Date: 20070426
  Transmission Date: 20071010
  Serious: Yes (Other)
  Sender: FDA-Public Use
  Company Number: AUWYE542327APR07

PATIENT
  Age: 40 Year
  Sex: Female

DRUGS (3)
  1. EFFEXOR XR [Suspect]
     Indication: DEPRESSION
     Route: 048
     Dates: start: 20070401
  2. EFFEXOR XR [Suspect]
     Route: 048
     Dates: start: 20070401
  3. EFFEXOR XR [Suspect]
     Route: 048
     Dates: start: 20070401

REACTIONS (2)
  - PARKINSONISM [None]
  - SEROTONIN SYNDROME [None]
